FAERS Safety Report 19875228 (Version 1)
Quarter: 2021Q3

REPORT INFORMATION
  Report Type: Other
  Country: CA (occurrence: CA)
  Receive Date: 20210923
  Receipt Date: 20210923
  Transmission Date: 20211014
  Serious: Yes (Other)
  Sender: FDA-Public Use
  Company Number: CA-CELLTRION INC.-2021CA012735

PATIENT

DRUGS (26)
  1. BECLOMETHASONE [Concomitant]
     Active Substance: BECLOMETHASONE
     Dosage: 50 MICROGRAM, 2 EVERY 1 DAY
  2. BETADERM [Concomitant]
     Active Substance: BETAMETHASONE VALERATE
     Dosage: 1 DOSAGE FORM, 1 EVERY 1 DAY
     Route: 061
  3. NORTRIPTYLINE HYDROCHLORIDE. [Concomitant]
     Active Substance: NORTRIPTYLINE HYDROCHLORIDE
     Dosage: 25 MILLIGRAM, 1 EVERY 1 DAY
     Route: 048
  4. ACETAMINOPHEN AND CODEINE [Concomitant]
     Active Substance: ACETAMINOPHEN\CODEINE PHOSPHATE
     Dosage: 30 MILLIGRAM, 3 EVERY 1 DAY
     Route: 065
  5. LUMIGAN [Concomitant]
     Active Substance: BIMATOPROST
     Dosage: 1 DOSAGE FORM,1 EVERY 1 DAYS
     Route: 065
  6. PANTOPRAZOLE [Concomitant]
     Active Substance: PANTOPRAZOLE
     Dosage: 40 MILLIGRAM, 1 EVERY 1 DAY
     Route: 048
  7. CIMETIDINE [Concomitant]
     Active Substance: CIMETIDINE
     Dosage: 200 MILLIGRAM, 1 EVERY 1 DAYS
     Route: 048
  8. FOLIC ACID. [Concomitant]
     Active Substance: FOLIC ACID
     Dosage: 5 MILLIGRAM
     Route: 048
  9. OMEGA 3 [FISH OIL] [Concomitant]
     Active Substance: FISH OIL
     Dosage: 1000 MILLIGRAM
     Route: 065
  10. CETIRIZINE HYDROCHLORIDE. [Concomitant]
     Active Substance: CETIRIZINE HYDROCHLORIDE
     Dosage: 10 MILLIGRAM
     Route: 065
  11. PREDNISONE. [Concomitant]
     Active Substance: PREDNISONE
     Dosage: 5 MILLIGRAM
     Route: 065
  12. LIPITOR [Concomitant]
     Active Substance: ATORVASTATIN CALCIUM
     Dosage: 20 MILLIGRAM, 1 EVERY 1 DAY
     Route: 048
  13. VITAMIN B COMPLEX [Concomitant]
     Active Substance: CYANOCOBALAMIN\DEXPANTHENOL\NIACINAMIDE\PYRIDOXINE HYDROCHLORIDE\RIBOFLAVIN 5^-PHOSPHATE SODIUM\THIAMINE HYDROCHLORIDE\VITAMIN B COMPLEX
     Dosage: 50 MILLIGRAM
     Route: 065
  14. FERROUS GLUCONATE [Concomitant]
     Active Substance: FERROUS GLUCONATE
     Dosage: 300 MILLIGRAM
     Route: 065
  15. HUMALOG [Concomitant]
     Active Substance: INSULIN LISPRO
     Dosage: 1 DOSAGE FORM
     Route: 065
  16. METFORMIN [Concomitant]
     Active Substance: METFORMIN HYDROCHLORIDE
     Dosage: 500 MILLIGRAM, 2 EVERY 1 DAY
     Route: 048
  17. MYCOPHENOLATE MOFETIL. [Concomitant]
     Active Substance: MYCOPHENOLATE MOFETIL
     Dosage: 1000 MILLIGRAM,3 EVERY 1 DAY
     Route: 065
  18. RIZATRIPTAN. [Concomitant]
     Active Substance: RIZATRIPTAN
     Indication: MIGRAINE
     Dosage: 10 MILLIGRAM, AS REQUIRED
     Route: 065
  19. RITUXIMAB. [Suspect]
     Active Substance: RITUXIMAB
     Indication: PEMPHIGOID
     Dosage: 1000 MILLIGRAM
     Route: 042
  20. CYCLOBENZAPRINE. [Concomitant]
     Active Substance: CYCLOBENZAPRINE
     Dosage: 10 MILLIGRAM, AS REQUIRED
     Route: 048
  21. DICLOFENAC [Concomitant]
     Active Substance: DICLOFENAC
     Indication: MIGRAINE
     Dosage: 50 MILLIGRAM, AS REQUIRED
     Route: 065
  22. GABAPENTIN. [Concomitant]
     Active Substance: GABAPENTIN
     Dosage: 300 MILLIGRAM, 3 EVERY 1 DAY
     Route: 065
  23. ACIDOPHILUS [Concomitant]
     Active Substance: LACTOBACILLUS ACIDOPHILUS
     Dosage: 1 DOSAGE FORM, 2 EVERY 1 DAY
     Route: 065
  24. ALTACE [Concomitant]
     Active Substance: RAMIPRIL
     Dosage: 10 MILLIGRAM, 2 EVERY 1 DAY
     Route: 048
  25. BRIMONIDINE TARTRATE/TIMOLOL MALEATE [Concomitant]
     Active Substance: BRIMONIDINE TARTRATE\TIMOLOL MALEATE
     Dosage: 1 DOSAGE FORM, 2 EVERY 1 DAY
     Route: 065
  26. CALCIUM [Concomitant]
     Active Substance: CALCIUM
     Dosage: 650 MILLIGRAM, 3 EVERY 1 DAY
     Route: 065

REACTIONS (4)
  - Off label use [Recovered/Resolved]
  - Off label use [Unknown]
  - Diabetes mellitus [Recovered/Resolved]
  - Blood glucose increased [Recovered/Resolved]
